FAERS Safety Report 16095613 (Version 1)
Quarter: 2019Q2

REPORT INFORMATION
  Report Type: Spontaneous
  Country: US (occurrence: US)
  Receive Date: 20190320
  Receipt Date: 20190320
  Transmission Date: 20190711
  Serious: No
  Sender: FDA-Public Use
  Company Number: None

PATIENT
  Age: 40 Year
  Sex: Female
  Weight: 54 kg

DRUGS (6)
  1. AIMOVIG [Suspect]
     Active Substance: ERENUMAB-AOOE
     Indication: MIGRAINE
     Dosage: ?          QUANTITY:2 INJECTION(S);OTHER FREQUENCY:ONCE EVERY 28 DAYS;OTHER ROUTE:INJECTED IN STOMACH?
  2. EFFEXOR [Concomitant]
     Active Substance: VENLAFAXINE HYDROCHLORIDE
  3. CEFALY [Concomitant]
     Active Substance: DEVICE
  4. NAPROXEN SODIUM. [Concomitant]
     Active Substance: NAPROXEN SODIUM
  5. RIZATRIPTAN. [Concomitant]
     Active Substance: RIZATRIPTAN
  6. WOMEN^S VITAMIN [Concomitant]

REACTIONS (1)
  - Anxiety [None]

NARRATIVE: CASE EVENT DATE: 20190319
